FAERS Safety Report 7288877-6 (Version None)
Quarter: 2011Q1

REPORT INFORMATION
  Report Type: 
  Country: None (occurrence: None)
  Receive Date: 20110211
  Receipt Date: 20110202
  Transmission Date: 20110831
  Serious: Yes (Hospitalization, Other)
  Sender: FDA-Public Use
  Company Number: BR-ASTRAZENECA-2011SE06340

PATIENT
  Age: 48 Year
  Sex: Female
  Weight: 95 kg

DRUGS (7)
  1. OMEPRAZOLE [Suspect]
     Route: 048
     Dates: start: 20090101
  2. FORASEQ [Concomitant]
     Indication: ASTHMA
     Route: 055
  3. SPIRIVA [Concomitant]
     Indication: BRONCHITIS
     Route: 055
  4. SINGULAIR [Concomitant]
     Indication: BRONCHITIS
     Route: 048
  5. FORASEQ [Concomitant]
     Indication: BRONCHITIS
     Route: 055
  6. SINGULAIR [Concomitant]
     Indication: ASTHMA
     Route: 048
  7. SPIRIVA [Concomitant]
     Indication: ASTHMA
     Route: 055

REACTIONS (1)
  - BREAST CANCER [None]
